FAERS Safety Report 14100430 (Version 2)
Quarter: 2018Q2

REPORT INFORMATION
  Report Type: Spontaneous
  Country: JP (occurrence: JP)
  Receive Date: 20171017
  Receipt Date: 20180502
  Transmission Date: 20180711
  Serious: Yes (Death, Other)
  Sender: FDA-Public Use
  Company Number: JP-SPECTRUM PHARMACEUTICALS, INC.-17-F-JP-00328

PATIENT
  Age: 65 Year
  Sex: Male

DRUGS (1)
  1. FOLOTYN [Suspect]
     Active Substance: PRALATREXATE
     Indication: PRODUCT USED FOR UNKNOWN INDICATION
     Dosage: 20 MG/M2, SINGLE
     Route: 042
     Dates: start: 20170912, end: 20170912

REACTIONS (2)
  - Disease progression [Fatal]
  - Pancytopenia [Unknown]

NARRATIVE: CASE EVENT DATE: 20170919
